FAERS Safety Report 26024119 (Version 1)
Quarter: 2025Q4

REPORT INFORMATION
  Report Type: Spontaneous
  Country: EU (occurrence: None)
  Receive Date: 20251111
  Receipt Date: 20251111
  Transmission Date: 20260119
  Serious: Yes (Hospitalization)
  Sender: ENDO
  Company Number: EU-ENDO USA, INC.-2025-002244

PATIENT
  Age: 41 Year
  Sex: Male

DRUGS (6)
  1. BUPROPION HYDROCHLORIDE [Suspect]
     Active Substance: BUPROPION HYDROCHLORIDE
     Indication: Depression
     Dosage: 300 MILLIGRAM, UNKNOWN
     Route: 065
  2. BUPROPION HYDROCHLORIDE [Suspect]
     Active Substance: BUPROPION HYDROCHLORIDE
     Dosage: 150 MILLIGRAM, UNKNOWN
     Route: 065
  3. ETOMIDATE [Concomitant]
     Active Substance: ETOMIDATE
     Indication: Induction of anaesthesia
     Dosage: 30 MILLIGRAM, UNKNOWN
     Route: 065
  4. ETOMIDATE [Concomitant]
     Active Substance: ETOMIDATE
     Indication: Electroconvulsive therapy
  5. SUCCINYLCHOLINE [Concomitant]
     Active Substance: SUCCINYLCHOLINE
     Indication: Induction of anaesthesia
     Dosage: 150 MILLIGRAM, UNKNOWN
     Route: 065
  6. SUCCINYLCHOLINE [Concomitant]
     Active Substance: SUCCINYLCHOLINE
     Indication: Electroconvulsive therapy

REACTIONS (2)
  - Status epilepticus [Recovered/Resolved]
  - Major depression [Unknown]
